FAERS Safety Report 14860399 (Version 3)
Quarter: 2018Q2

REPORT INFORMATION
  Report Type: Report from Study
  Country: US (occurrence: US)
  Receive Date: 20180508
  Receipt Date: 20180606
  Transmission Date: 20180711
  Serious: Yes (Hospitalization)
  Sender: FDA-Public Use
  Company Number: US-TESARO, INC.-US-2018TSO02087

PATIENT
  Age: 75 Year
  Sex: Female
  Weight: 62.9 kg

DRUGS (7)
  1. NIRAPARIB [Suspect]
     Active Substance: NIRAPARIB
     Dosage: 100 MG, QD
     Route: 048
     Dates: start: 20180502
  2. LIPITOR [Concomitant]
     Active Substance: ATORVASTATIN CALCIUM
     Indication: BLOOD CHOLESTEROL INCREASED
     Dosage: 20 MG, QD
     Route: 048
     Dates: start: 20170905
  3. NYSTATIN. [Concomitant]
     Active Substance: NYSTATIN
     Indication: RASH MACULO-PAPULAR
     Dosage: UNK, BID
     Route: 061
     Dates: start: 20180411
  4. NIRAPARIB [Suspect]
     Active Substance: NIRAPARIB
     Indication: OVARIAN CANCER
     Dosage: 200 MG, QD
     Route: 048
     Dates: start: 20180328, end: 20180423
  5. CALCIUM/VITAMIN D3 [Concomitant]
     Indication: SUPPLEMENTATION THERAPY
     Dosage: 1500 MG, QD
     Route: 048
     Dates: start: 20180207
  6. BAYER [Concomitant]
     Active Substance: ASPIRIN
     Indication: PAIN PROPHYLAXIS
     Dosage: 81 MG, PRN
     Route: 048
     Dates: start: 20180206, end: 20180328
  7. COLACE [Concomitant]
     Active Substance: DOCUSATE SODIUM
     Indication: CONSTIPATION
     Dosage: 100 MG, TID
     Route: 048
     Dates: start: 20171217

REACTIONS (1)
  - Enteritis [Recovered/Resolved]

NARRATIVE: CASE EVENT DATE: 20180423
